FAERS Safety Report 22008786 (Version 1)
Quarter: 2023Q1

REPORT INFORMATION
  Report Type: Spontaneous
  Country: CN (occurrence: CN)
  Receive Date: 20230219
  Receipt Date: 20230219
  Transmission Date: 20230418
  Serious: Yes (Other)
  Sender: FDA-Public Use
  Company Number: None

PATIENT
  Age: 60 Year
  Sex: Male
  Weight: 60 kg

DRUGS (12)
  1. CYCLOPHOSPHAMIDE [Suspect]
     Active Substance: CYCLOPHOSPHAMIDE
     Indication: Non-Hodgkin^s lymphoma
     Dosage: 1200 MG, ONCE DAILY, DILUTED WITH 250 ML OF 0.9 % SODIUM CHLORIDE
     Route: 041
     Dates: start: 20221229, end: 20221229
  2. SODIUM CHLORIDE [Suspect]
     Active Substance: SODIUM CHLORIDE
     Indication: Medication dilution
     Dosage: 250 ML, ONCE DAILY, DOSAGE FORM: INJECTION, USED TO DILUTE 1200 MG CYCLOPHOSPHAMIDE
     Route: 041
     Dates: start: 20221229, end: 20221229
  3. SODIUM CHLORIDE [Suspect]
     Active Substance: SODIUM CHLORIDE
     Dosage: 100 ML, ONCE DAILY, DOSAGE FORM: INJECTION, USED TO DILUTE 15 MG IDARUBICIN HYDROCHLORIDE
     Route: 041
     Dates: start: 20221229, end: 20221229
  4. SODIUM CHLORIDE [Suspect]
     Active Substance: SODIUM CHLORIDE
     Dosage: 100 ML, ONCE DAILY, DOSAGE FORM: INJECTION, USED TO DILUTE 10 MG IDARUBICIN HYDROCHLORIDE
     Route: 041
     Dates: start: 20230105, end: 20230105
  5. SODIUM CHLORIDE [Suspect]
     Active Substance: SODIUM CHLORIDE
     Dosage: 20 ML, ONCE DAILY, DOSAGE FORM: INJECTION, USED TO DILUTE 2 MG VINCRISTINE SULFATE
     Route: 041
     Dates: start: 20221229, end: 20221229
  6. SODIUM CHLORIDE [Suspect]
     Active Substance: SODIUM CHLORIDE
     Dosage: 20 ML, ONCE DAILY, DOSAGE FORM: INJECTION, USED TO DILUTE 2 MG VINCRISTINE SULFATE
     Route: 041
     Dates: start: 20230105
  7. IDARUBICIN HYDROCHLORIDE [Suspect]
     Active Substance: IDARUBICIN HYDROCHLORIDE
     Indication: Non-Hodgkin^s lymphoma
     Dosage: 15 MG, ONCE DAILY, DILUTED WITH 100 ML OF 0.9 % SODIUM CHLORIDE
     Route: 041
     Dates: start: 20221229, end: 20221229
  8. IDARUBICIN HYDROCHLORIDE [Suspect]
     Active Substance: IDARUBICIN HYDROCHLORIDE
     Dosage: 10 MG, ONCE DAILY, DILUTED WITH 100 ML OF 0.9 % SODIUM CHLORIDE
     Route: 041
     Dates: start: 20230105, end: 20230105
  9. VINCRISTINE SULFATE [Suspect]
     Active Substance: VINCRISTINE SULFATE
     Indication: Non-Hodgkin^s lymphoma
     Dosage: 2 MG, ONCE DAILY, DILUTED WITH 20 ML OF 0.9 % SODIUM CHLORIDE
     Route: 041
     Dates: start: 20221229, end: 20221229
  10. VINCRISTINE SULFATE [Suspect]
     Active Substance: VINCRISTINE SULFATE
     Dosage: 2 MG, ONCE DAILY, DILUTED WITH 20 ML OF 0.9 % SODIUM CHLORIDE
     Route: 041
     Dates: start: 20230105
  11. GRANULOCYTE COLONY-STIMULATING FACTOR NOS [Concomitant]
     Active Substance: GRANULOCYTE COLONY-STIMULATING FACTOR NOS
     Dosage: 300 MICROGRAM, QD, DILUTED WITH 10 ML OF 0.9 % SODIUM CHLORIDE
     Route: 042
     Dates: start: 20230106, end: 20230113
  12. SODIUM CHLORIDE [Concomitant]
     Active Substance: SODIUM CHLORIDE
     Indication: Medication dilution
     Dosage: 10 ML, QD, USED TO DILUTE 300UG HUMAN GRANULOCYTE COLONY STIMULATING FACTOR
     Route: 042
     Dates: start: 20230106, end: 20230113

REACTIONS (1)
  - Neutrophil count decreased [Recovering/Resolving]

NARRATIVE: CASE EVENT DATE: 20230109
